FAERS Safety Report 6841964-6 (Version None)
Quarter: 2010Q3

REPORT INFORMATION
  Report Type: 
  Country: None (occurrence: None)
  Receive Date: 20100714
  Receipt Date: 20090909
  Transmission Date: 20110219
  Serious: Yes (Other)
  Sender: FDA-Public Use
  Company Number: US-PFIZER INC-2007059752

PATIENT
  Sex: Female

DRUGS (2)
  1. CHANTIX [Suspect]
     Route: 048
  2. MORPHINE [Suspect]

REACTIONS (6)
  - CIRCUMSTANCE OR INFORMATION CAPABLE OF LEADING TO MEDICATION ERROR [None]
  - MOOD ALTERED [None]
  - MULTIPLE SCLEROSIS RELAPSE [None]
  - NAUSEA [None]
  - THERAPY REGIMEN CHANGED [None]
  - VOMITING [None]
